FAERS Safety Report 4756258-2 (Version None)
Quarter: 2005Q3

REPORT INFORMATION
  Report Type: 
  Country: None (occurrence: None)
  Receive Date: 20050830
  Receipt Date: 20050516
  Transmission Date: 20060218
  Serious: No
  Sender: FDA-Public Use
  Company Number: US-GLAXOSMITHKLINE-A0558814A

PATIENT
  Age: 45 Year
  Sex: Male

DRUGS (2)
  1. WELLBUTRIN XL [Suspect]
     Indication: DEPRESSION
     Dosage: 150MG PER DAY
     Route: 048
     Dates: start: 20041101
  2. NO CONCURRENT MEDICATION [Concomitant]

REACTIONS (4)
  - ANOREXIA [None]
  - HYPERHIDROSIS [None]
  - PRURITUS [None]
  - RASH [None]
